FAERS Safety Report 14450403 (Version 1)
Quarter: 2018Q1

REPORT INFORMATION
  Report Type: Spontaneous
  Country: TW (occurrence: TW)
  Receive Date: 20180129
  Receipt Date: 20180129
  Transmission Date: 20180509
  Serious: Yes (Other)
  Sender: FDA-Public Use
  Company Number: TW-CASPER PHARMA, LLC-CAS201801-000028

PATIENT
  Age: 19 Year
  Sex: Male

DRUGS (1)
  1. AZATHIOPRINE. [Suspect]
     Active Substance: AZATHIOPRINE
     Indication: MENINGITIS

REACTIONS (1)
  - Optic neuritis [Recovering/Resolving]
